FAERS Safety Report 25067659 (Version 2)
Quarter: 2025Q1

REPORT INFORMATION
  Report Type: Spontaneous
  Country: GB (occurrence: GB)
  Receive Date: 20250312
  Receipt Date: 20250322
  Transmission Date: 20250408
  Serious: Yes (Hospitalization)
  Sender: AUROBINDO
  Company Number: GB-AUROBINDO-AUR-APL-2025-012588

PATIENT
  Sex: Female

DRUGS (12)
  1. PREDNISOLONE [Suspect]
     Active Substance: PREDNISOLONE
     Indication: Pemphigoid
     Dosage: 30 MILLIGRAM, ONCE A DAY
     Route: 065
  2. LINAGLIPTIN [Concomitant]
     Active Substance: LINAGLIPTIN
     Indication: Pemphigoid
     Dosage: 5 MILLIGRAM, ONCE A DAY (5MG ONCE A DAY)
     Route: 065
  3. WARFARIN [Concomitant]
     Active Substance: WARFARIN
     Indication: Product used for unknown indication
     Route: 065
  4. LOSARTAN [Concomitant]
     Active Substance: LOSARTAN
     Indication: Product used for unknown indication
     Route: 065
  5. INDAPAMIDE [Concomitant]
     Active Substance: INDAPAMIDE
     Indication: Product used for unknown indication
     Route: 065
  6. DOXAZOSIN [Concomitant]
     Active Substance: DOXAZOSIN MESYLATE
     Indication: Product used for unknown indication
     Route: 065
  7. BUMETANIDE [Concomitant]
     Active Substance: BUMETANIDE
     Indication: Product used for unknown indication
     Route: 065
  8. ATORVASTATIN [Concomitant]
     Active Substance: ATORVASTATIN
     Indication: Product used for unknown indication
     Route: 065
  9. FLUCLOXACILLIN [Concomitant]
     Active Substance: FLUCLOXACILLIN
     Indication: Cellulitis
     Route: 042
  10. CEFTRIAXONE [Concomitant]
     Active Substance: CEFTRIAXONE
     Indication: Endocarditis
     Route: 042
  11. AMOXICILLIN\CLAVULANIC ACID [Concomitant]
     Active Substance: AMOXICILLIN\CLAVULANIC ACID
     Indication: Cellulitis
     Route: 042
  12. PENICILLIN G [Concomitant]
     Active Substance: PENICILLIN G
     Indication: Cellulitis
     Route: 042

REACTIONS (1)
  - Condition aggravated [Recovering/Resolving]
